FAERS Safety Report 7673417-X (Version None)
Quarter: 2011Q3

REPORT INFORMATION
  Report Type: 
  Country: None (occurrence: None)
  Receive Date: 20110810
  Receipt Date: 20110803
  Transmission Date: 20111222
  Serious: Yes (Other)
  Sender: FDA-Public Use
  Company Number: US-PFIZER INC-2011162244

PATIENT
  Sex: Male

DRUGS (2)
  1. LAMICTAL [Suspect]
     Indication: CONVULSION
     Dosage: VARIABLE DOSE DAILY
     Route: 048
     Dates: start: 20110627
  2. PHENYTOIN [Suspect]
     Indication: CONVULSION
     Dosage: 300 MG

REACTIONS (4)
  - AURA [None]
  - HEADACHE [None]
  - PARTIAL SEIZURES [None]
  - CONVULSION [None]
